FAERS Safety Report 5370944-5 (Version None)
Quarter: 2007Q2

REPORT INFORMATION
  Report Type: 
  Country: None (occurrence: None)
  Receive Date: 20070626
  Receipt Date: 20070613
  Transmission Date: 20071010
  Serious: Yes (Other)
  Sender: FDA-Public Use
  Company Number: US-PFIZER INC-2007010053

PATIENT
  Sex: Female
  Weight: 31.8 kg

DRUGS (1)
  1. LYRICA [Suspect]
     Indication: DIABETIC NEUROPATHY
     Dates: start: 20060424, end: 20060801

REACTIONS (4)
  - BALANCE DISORDER [None]
  - DIZZINESS [None]
  - DYSSTASIA [None]
  - PAIN [None]
